FAERS Safety Report 19165680 (Version 1)
Quarter: 2021Q2

REPORT INFORMATION
  Report Type: Spontaneous
  Country: US (occurrence: US)
  Receive Date: 20210421
  Receipt Date: 20210421
  Transmission Date: 20210717
  Serious: No
  Sender: FDA-Public Use
  Company Number: US-ZOGENIX INTERNATIONAL LIMITED, A WHOLLY OWNED SUBSIDIARY OF ZOGENIX, INC.-2021ZX000083

PATIENT
  Age: 13 Year
  Sex: Male

DRUGS (1)
  1. FINTEPLA [Suspect]
     Active Substance: FENFLURAMINE
     Indication: LENNOX-GASTAUT SYNDROME
     Route: 048
     Dates: start: 20210127, end: 20210219

REACTIONS (7)
  - Decreased appetite [Unknown]
  - Hypoaesthesia [Unknown]
  - Off label use [Unknown]
  - Muscular weakness [Unknown]
  - Paraesthesia [Unknown]
  - Somnolence [Unknown]
  - Lethargy [Unknown]
